FAERS Safety Report 13909919 (Version 1)
Quarter: 2017Q3

REPORT INFORMATION
  Report Type: Spontaneous
  Country: US (occurrence: US)
  Receive Date: 20170828
  Receipt Date: 20170828
  Transmission Date: 20171127
  Serious: No
  Sender: FDA-Public Use
  Company Number: US-BRISTOL-MYERS SQUIBB COMPANY-BMS-2017-074921

PATIENT
  Age: 83 Year
  Sex: Female

DRUGS (3)
  1. OSELTAMIVIR [Suspect]
     Active Substance: OSELTAMIVIR
     Indication: ACUTE RESPIRATORY FAILURE
     Route: 065
  2. FUROSEMIDE. [Concomitant]
     Active Substance: FUROSEMIDE
     Indication: ACUTE RESPIRATORY FAILURE
     Route: 065
  3. WARFARIN SODIUM. [Suspect]
     Active Substance: WARFARIN SODIUM
     Indication: PULMONARY EMBOLISM
     Route: 065

REACTIONS (2)
  - International normalised ratio increased [Unknown]
  - Drug interaction [Unknown]
